FAERS Safety Report 8328443-4 (Version None)
Quarter: 2012Q2

REPORT INFORMATION
  Report Type: 
  Country: None (occurrence: None)
  Receive Date: 20120502
  Receipt Date: 20120427
  Transmission Date: 20120825
  Serious: Yes (Hospitalization)
  Sender: FDA-Public Use
  Company Number: CA-PFIZER INC-2012067121

PATIENT
  Age: 87 Year
  Sex: Female
  Weight: 50.34 kg

DRUGS (6)
  1. SLOW-K [Concomitant]
     Dosage: 16 MEQ, 1X/DAY
     Route: 048
  2. HYDROCHLOROTHIAZIDE [Concomitant]
     Dosage: 125MG AND ANOTHER POTENTIALLY SEPARATE DOSING, 1X/DAY
     Route: 048
  3. SERTRALINE HYDROCHLORIDE [Suspect]
     Indication: DEPRESSION
     Dosage: 100 MG, 1X/DAY AT BEDTIME
     Route: 048
  4. LORAZEPAM [Suspect]
     Indication: INSOMNIA
     Dosage: 0.5 MG, 1X/DAY AT BEDTIME
     Route: 048
  5. SEROQUEL [Suspect]
     Dosage: 325 MG, 1X/DAY AT BEDTIME
     Route: 048
  6. DIDROCAL KIT [Concomitant]
     Dosage: UNK

REACTIONS (2)
  - HIP FRACTURE [None]
  - FALL [None]
